FAERS Safety Report 11500136 (Version 1)
Quarter: 2015Q3

REPORT INFORMATION
  Report Type: Spontaneous
  Country: FR (occurrence: FR)
  Receive Date: 20150914
  Receipt Date: 20150914
  Transmission Date: 20151125
  Serious: Yes (Hospitalization)
  Sender: FDA-Public Use
  Company Number: FR-SA-2015SA137404

PATIENT
  Age: 93 Year
  Sex: Female

DRUGS (12)
  1. TEMERIT [Concomitant]
     Active Substance: NEBIVOLOL
     Dosage: QUADRISECTED TABLET?STRENGTH: 5 MG
     Route: 048
  2. AMLOR [Concomitant]
     Active Substance: AMLODIPINE BESYLATE
     Dosage: STRENGTH: 10 MG
     Route: 048
  3. TAHOR [Concomitant]
     Active Substance: ATORVASTATIN CALCIUM
  4. PLAVIX [Concomitant]
     Active Substance: CLOPIDOGREL BISULFATE
     Dosage: STRENGTH: 75 MG
     Route: 048
  5. FLAGYL [Suspect]
     Active Substance: METRONIDAZOLE\METRONIDAZOLE HYDROCHLORIDE
     Indication: DIARRHOEA
     Route: 048
     Dates: start: 20150723, end: 20150727
  6. KAYEXALATE [Suspect]
     Active Substance: SODIUM POLYSTYRENE SULFONATE
     Dosage: FORM: POWDER FOR ORAL AND RECTAL SUSPENSION
     Route: 048
  7. LASILIX SPECIAL [Suspect]
     Active Substance: FUROSEMIDE
     Route: 048
  8. IMOVANE [Concomitant]
     Active Substance: ZOPICLONE
     Dosage: STRENGTH: 3.75 MG
     Route: 048
  9. KARDEGIC [Concomitant]
     Active Substance: ASPIRIN LYSINE
     Dosage: POWDER FOR ORAL SOLUTION IN DOSE SACHET?STRENGTH: 75MG
     Route: 048
  10. MOTILIUM [Concomitant]
     Active Substance: DOMPERIDONE
     Route: 048
  11. COVERSYL [Suspect]
     Active Substance: PERINDOPRIL
     Route: 048
  12. GLYCERYL TRINITRATE [Concomitant]
     Active Substance: NITROGLYCERIN
     Dosage: STRENGTH: 10  MG /24  HOURS,  TRANSDERMAL PATCH  (44.8  MG /  14  CM2)
     Route: 062

REACTIONS (2)
  - Hyperkalaemia [Recovered/Resolved]
  - Acute kidney injury [Recovered/Resolved]

NARRATIVE: CASE EVENT DATE: 20150727
